FAERS Safety Report 14986485 (Version 1)
Quarter: 2018Q2

REPORT INFORMATION
  Report Type: Spontaneous
  Country: US (occurrence: US)
  Receive Date: 20180607
  Receipt Date: 20180607
  Transmission Date: 20180711
  Serious: No
  Sender: FDA-Public Use
  Company Number: US-ELI_LILLY_AND_COMPANY-US201806002281

PATIENT
  Age: 64 Year
  Sex: Female

DRUGS (2)
  1. HUMULIN NOS [Concomitant]
     Active Substance: INSULIN HUMAN
     Indication: TYPE 2 DIABETES MELLITUS
     Dosage: 15 MG, DAILY
  2. TRULICITY [Suspect]
     Active Substance: DULAGLUTIDE
     Indication: PRODUCT USED FOR UNKNOWN INDICATION
     Dosage: 0.75 MG, UNKNOWN
     Route: 065
     Dates: start: 20180424

REACTIONS (1)
  - Alopecia [Not Recovered/Not Resolved]

NARRATIVE: CASE EVENT DATE: 20180501
